FAERS Safety Report 12465420 (Version 3)
Quarter: 2017Q3

REPORT INFORMATION
  Report Type: Spontaneous
  Country: DO (occurrence: DO)
  Receive Date: 20160614
  Receipt Date: 20170915
  Transmission Date: 20171127
  Serious: Yes (Other)
  Sender: FDA-Public Use
  Company Number: DO-ROCHE-1772607

PATIENT
  Age: 27 Year
  Sex: Female

DRUGS (3)
  1. XOLAIR [Suspect]
     Active Substance: OMALIZUMAB
     Indication: CHRONIC SPONTANEOUS URTICARIA
     Dosage: 300 MG, QD
     Route: 058
     Dates: start: 20150707
  2. XOLAIR [Suspect]
     Active Substance: OMALIZUMAB
     Dosage: 150 MG, QD
     Route: 058
     Dates: start: 20151111
  3. XOLAIR [Suspect]
     Active Substance: OMALIZUMAB
     Dosage: 150 MG, QD
     Route: 058
     Dates: start: 20150821

REACTIONS (3)
  - Zika virus infection [Unknown]
  - Maternal exposure during pregnancy [Unknown]
  - Abortion incomplete [Unknown]

NARRATIVE: CASE EVENT DATE: 2016
